FAERS Safety Report 10186263 (Version 1)
Quarter: 2014Q2

REPORT INFORMATION
  Report Type: Spontaneous
  Country: JP (occurrence: JP)
  Receive Date: 20140521
  Receipt Date: 20140521
  Transmission Date: 20141212
  Serious: Yes (Other)
  Sender: FDA-Public Use
  Company Number: JP-WATSON-2014-10622

PATIENT
  Age: 65 Year
  Sex: Male

DRUGS (11)
  1. ALLOPURINOL (UNKNOWN) [Suspect]
     Indication: HYPERURICAEMIA
     Dosage: UNKNOWN
     Route: 065
     Dates: start: 19970221, end: 19970411
  2. RIFAMPICIN (UNKNOWN) [Suspect]
     Indication: PERICARDITIS TUBERCULOUS
     Dosage: UNKNOWN
     Route: 065
     Dates: start: 199612
  3. RIFAMPICIN (UNKNOWN) [Suspect]
     Indication: PULMONARY TUBERCULOSIS
  4. LEVOFLOXACIN (UNKNOWN) [Suspect]
     Indication: PERICARDITIS TUBERCULOUS
     Dosage: UNKNOWN
     Route: 065
  5. ISONIAZID [Suspect]
     Indication: PERICARDITIS TUBERCULOUS
     Dosage: UNKNOWN
     Route: 065
     Dates: start: 199612
  6. ISONIAZID [Suspect]
     Indication: PULMONARY TUBERCULOSIS
  7. ETHAMBUTOL [Suspect]
     Indication: PERICARDITIS TUBERCULOUS
     Dosage: UNKNOWN
     Route: 065
     Dates: start: 199612
  8. ETHAMBUTOL [Suspect]
     Indication: PULMONARY TUBERCULOSIS
  9. STREPTOMYCIN [Suspect]
     Indication: PERICARDITIS TUBERCULOUS
     Dosage: UNKNOWN
     Route: 065
  10. PYRAZINAMIDE [Suspect]
     Indication: PULMONARY TUBERCULOSIS
     Dosage: UNKNOWN
     Route: 065
  11. PREDNISOLONE [Concomitant]
     Indication: PERICARDITIS
     Dosage: 30 MG, UNK
     Route: 048

REACTIONS (2)
  - Drug reaction with eosinophilia and systemic symptoms [Recovering/Resolving]
  - Drug hypersensitivity [Recovering/Resolving]
